FAERS Safety Report 5264902-9 (Version None)
Quarter: 2007Q1

REPORT INFORMATION
  Report Type: 
  Country: None (occurrence: None)
  Receive Date: 20061117
  Receipt Date: 20060508
  Transmission Date: 20070707
  Serious: Yes (Other)
  Sender: FDA-Public Use
  Company Number: US-JNJFOC-20060502121

PATIENT
  Age: 43 Year
  Sex: Female
  Weight: 52.1637 kg

DRUGS (1)
  1. LEVAQUIN [Suspect]
     Indication: URINARY TRACT INFECTION
     Dosage: 250 MG, 1 IN 1 DAY, ORAL
     Route: 048
     Dates: start: 20050504, end: 20050505

REACTIONS (1)
  - CONVULSION [None]
